FAERS Safety Report 4405763-7 (Version None)
Quarter: 2004Q3

REPORT INFORMATION
  Report Type: 
  Country: None (occurrence: None)
  Receive Date: 20040723
  Receipt Date: 20031201
  Transmission Date: 20050211
  Serious: No
  Sender: FDA-Public Use
  Company Number: US-GLAXOSMITHKLINE-A0441900A

PATIENT
  Age: 52 Year
  Sex: Female
  Weight: 103.2 kg

DRUGS (8)
  1. AVANDIA [Suspect]
     Dosage: 4MG UNKNOWN
     Route: 048
     Dates: start: 20030731
  2. ROSIGLITAZONE [Suspect]
     Route: 065
  3. AVAPRO [Concomitant]
     Indication: BLOOD PRESSURE
  4. VIVELLE ESTROGEN PATCH [Concomitant]
     Indication: HORMONE REPLACEMENT THERAPY
     Route: 062
     Dates: start: 20030902
  5. PROVIGIL [Concomitant]
     Dates: start: 20040202
  6. UNSPECIFIED MEDICATION [Concomitant]
     Dosage: 10MG PER DAY
     Route: 048
     Dates: start: 20031230
  7. AMARYL [Concomitant]
  8. GLUCOPHAGE [Concomitant]

REACTIONS (3)
  - FATIGUE [None]
  - HYPERSOMNIA [None]
  - LISTLESS [None]
